FAERS Safety Report 4695657-4 (Version None)
Quarter: 2005Q2

REPORT INFORMATION
  Report Type: 
  Country: None (occurrence: None)
  Receive Date: 20050621
  Receipt Date: 20050609
  Transmission Date: 20051028
  Serious: Yes (Hospitalization)
  Sender: FDA-Public Use
  Company Number: 200511965FR

PATIENT
  Age: 56 Year
  Sex: Female

DRUGS (3)
  1. FLAGYL [Suspect]
     Indication: DIARRHOEA
     Route: 048
     Dates: start: 20050317, end: 20050608
  2. LEVOTHYROX [Concomitant]
  3. DOXYCYCLINE [Concomitant]
     Indication: DIARRHOEA
     Dates: start: 20050419, end: 20050429

REACTIONS (10)
  - ANOREXIA [None]
  - BRADYPHRENIA [None]
  - CONDITION AGGRAVATED [None]
  - DIARRHOEA [None]
  - DIFFICULTY IN WALKING [None]
  - MUSCLE CONTRACTIONS INVOLUNTARY [None]
  - PARAESTHESIA [None]
  - SELF-MEDICATION [None]
  - TINNITUS [None]
  - WEIGHT DECREASED [None]
